FAERS Safety Report 9824031 (Version 2)
Quarter: 2014Q1

REPORT INFORMATION
  Report Type: Spontaneous
  Country: US (occurrence: US)
  Receive Date: 20140116
  Receipt Date: 20140116
  Transmission Date: 20141002
  Serious: No
  Sender: FDA-Public Use
  Company Number: US-GILEAD-2011-0038472

PATIENT
  Age: 69 Year
  Sex: Female

DRUGS (1)
  1. LETAIRIS [Suspect]
     Indication: PRODUCT USED FOR UNKNOWN INDICATION
     Route: 048
     Dates: start: 20110323, end: 20110420

REACTIONS (6)
  - Weight increased [Unknown]
  - Sinus disorder [Unknown]
  - Sinus congestion [Unknown]
  - Headache [Unknown]
  - Oedema [Unknown]
  - Swelling [Unknown]
